FAERS Safety Report 6561933-3 (Version None)
Quarter: 2010Q1

REPORT INFORMATION
  Report Type: 
  Country: None (occurrence: None)
  Receive Date: 20100130
  Receipt Date: 20091110
  Transmission Date: 20100710
  Serious: No
  Sender: FDA-Public Use
  Company Number: US-ABBOTT-09P-163-0584019-00

PATIENT
  Sex: Male
  Weight: 99.88 kg

DRUGS (4)
  1. HUMIRA [Suspect]
     Indication: CROHN'S DISEASE
     Dosage: 160MG STARTING DOSE
     Dates: start: 20090502
  2. HUMIRA [Suspect]
  3. PRILOSEC [Concomitant]
     Indication: GASTROOESOPHAGEAL REFLUX DISEASE
  4. OTHER UNKNOWN MEDICATION [Concomitant]
     Indication: DRUG USE FOR UNKNOWN INDICATION

REACTIONS (7)
  - DYSPEPSIA [None]
  - HEADACHE [None]
  - NASAL CONGESTION [None]
  - NAUSEA [None]
  - RASH PAPULAR [None]
  - RHINORRHOEA [None]
  - SINUS CONGESTION [None]
